FAERS Safety Report 9503275 (Version 1)
Quarter: 2013Q3

REPORT INFORMATION
  Report Type: Report from Study
  Country: DE (occurrence: DE)
  Receive Date: 20130906
  Receipt Date: 20130906
  Transmission Date: 20140515
  Serious: Yes (Other)
  Sender: FDA-Public Use
  Company Number: DE-SANOFI-AVENTIS-2013SA087239

PATIENT
  Age: 56 Year
  Sex: Female
  Weight: 85 kg

DRUGS (7)
  1. MULTAQ [Suspect]
     Indication: ATRIAL FIBRILLATION
     Route: 065
     Dates: start: 20120730, end: 201307
  2. BETA BLOCKING AGENTS [Concomitant]
     Dates: start: 201003
  3. FACTOR II (PROTHROMBIN) [Concomitant]
     Dates: start: 20120628
  4. AMLODIPINE/VALSARTAN [Concomitant]
  5. PRADAXA [Concomitant]
  6. POTASSIUM [Concomitant]
  7. MAGNESIUM [Concomitant]

REACTIONS (1)
  - Atrial fibrillation [Unknown]
